FAERS Safety Report 9491257 (Version 1)
Quarter: 2013Q1

REPORT INFORMATION
  Report Type: Not Available
  Country: US (occurrence: US)
  Receive Date: 20120619
  Receipt Date: 20120619
  Transmission Date: 20140127
  Serious: Yes (Hospitalization)
  Sender: FDA-Public Use
  Company Number: US-LUNDBECK-DKLU1078197

PATIENT
  Sex: Male

DRUGS (5)
  1. SABRIL     (TABLET) [Suspect]
     Indication: EPILEPSY
     Dosage: 500 MG BID X 1 WEEK THEN TITRATED TO AN ADDITIONAL 500 MG EACH WEEK UNTIL MAXIMUM DOSE OF 3 GRAMS IS
     Dates: start: 20120125
  2. SABRIL     (TABLET) [Suspect]
     Indication: COMPLEX PARTIAL SEIZURES
  3. SABRIL     (TABLET) [Suspect]
     Indication: EPILEPSY
  4. TEGRETOL [Concomitant]
     Indication: PRODUCT USED FOR UNKNOWN INDICATION
  5. DEPAKOTE [Concomitant]
     Indication: PRODUCT USED FOR UNKNOWN INDICATION

REACTIONS (1)
  - Urinary tract infection [Recovered/Resolved]
